FAERS Safety Report 15932144 (Version 1)
Quarter: 2019Q1

REPORT INFORMATION
  Report Type: Spontaneous
  Country: US (occurrence: US)
  Receive Date: 20190207
  Receipt Date: 20190207
  Transmission Date: 20190417
  Serious: No
  Sender: FDA-Public Use
  Company Number: US-PFIZER INC-2019052288

PATIENT
  Age: 14 Year
  Sex: Male

DRUGS (5)
  1. GENOTROPIN MQ [Suspect]
     Active Substance: SOMATROPIN
     Indication: TRUNCUS ARTERIOSUS PERSISTENT
     Dosage: 1.4 MG, DAILY
  2. GENOTROPIN MQ [Suspect]
     Active Substance: SOMATROPIN
     Indication: GASTROOESOPHAGEAL REFLUX DISEASE
  3. GENOTROPIN MQ [Suspect]
     Active Substance: SOMATROPIN
     Indication: TOURETTE^S DISORDER
  4. GENOTROPIN MQ [Suspect]
     Active Substance: SOMATROPIN
     Indication: CONGENITAL HYPOTHYROIDISM
  5. GENOTROPIN MQ [Suspect]
     Active Substance: SOMATROPIN
     Indication: INTERRUPTION OF AORTIC ARCH

REACTIONS (3)
  - White blood cell count decreased [Unknown]
  - Product use in unapproved indication [Unknown]
  - Mean cell volume decreased [Unknown]
